FAERS Safety Report 9065966 (Version 1)
Quarter: 2013Q1

REPORT INFORMATION
  Report Type: Spontaneous
  Country: US (occurrence: US)
  Receive Date: 20130214
  Receipt Date: 20130214
  Transmission Date: 20140127
  Serious: No
  Sender: FDA-Public Use
  Company Number: US-BAYER-2013-018137

PATIENT
  Age: 88 Year
  Sex: Male
  Weight: 84 kg

DRUGS (8)
  1. ALEVE CAPLET/TABLET,MIDOL EXTENDED RELIEF CAPLET [Suspect]
     Dosage: 1 DF, QD WITH FOOD
     Route: 048
     Dates: start: 2011
  2. GABAPENTIN [Concomitant]
  3. AMLODIPINE BESYLATE [Concomitant]
  4. BAYER ASPIRIN REGIMEN ADULT LOW STRENGTH [Concomitant]
  5. ALLOPURINOL [Concomitant]
  6. ENALAPRIL MALEATE [Concomitant]
  7. ATORVASTATIN [Concomitant]
  8. VITAMIN D3 [Concomitant]

REACTIONS (1)
  - Incorrect drug administration duration [None]
